FAERS Safety Report 8949858 (Version 2)
Quarter: 2013Q1

REPORT INFORMATION
  Report Type: Report from Study
  Country: CA (occurrence: CA)
  Receive Date: 20121206
  Receipt Date: 20130114
  Transmission Date: 20140127
  Serious: Yes (Hospitalization)
  Sender: FDA-Public Use
  Company Number: CA-ROCHE-1153361

PATIENT
  Age: 68 Year
  Sex: Male
  Weight: 113 kg

DRUGS (10)
  1. TOCILIZUMAB [Suspect]
     Indication: RHEUMATOID ARTHRITIS
     Dosage: LAST DOSE TAKEN 8 MG/KG, LAST DOSE PRIOR TO SAE 04 OCT 2012
     Route: 042
     Dates: start: 20120322
  2. FOLIC ACID [Concomitant]
     Route: 048
     Dates: start: 201107
  3. PREDNISONE [Concomitant]
     Route: 048
     Dates: start: 201111, end: 20120414
  4. METHOTREXATE [Concomitant]
     Route: 058
     Dates: start: 20120204
  5. NAPROXEN [Concomitant]
     Route: 048
     Dates: start: 20120215
  6. NORVASC [Concomitant]
     Route: 048
     Dates: start: 20120319
  7. NEXIUM [Concomitant]
     Route: 048
     Dates: start: 20120215
  8. PREDNISONE [Concomitant]
     Route: 048
     Dates: start: 20120415
  9. VICTOZA [Concomitant]
     Route: 058
     Dates: start: 20120516, end: 20120519
  10. CIPRO [Concomitant]
     Route: 042
     Dates: start: 20120930, end: 20121105

REACTIONS (2)
  - Diverticulitis [Recovered/Resolved]
  - Diverticular perforation [Not Recovered/Not Resolved]
